FAERS Safety Report 5674828-4 (Version None)
Quarter: 2008Q2

REPORT INFORMATION
  Report Type: 
  Country: None (occurrence: None)
  Receive Date: 20080311
  Receipt Date: 20070208
  Transmission Date: 20081010
  Serious: Yes (Other)
  Sender: FDA-Public Use
  Company Number: 260743

PATIENT
  Age: 45 Year
  Sex: Male

DRUGS (1)
  1. NOVOSEVEN [Suspect]
     Indication: BRAIN STEM HAEMORRHAGE
     Dosage: INTRAVENOUS
     Route: 042

REACTIONS (1)
  - VENOUS THROMBOSIS LIMB [None]
